FAERS Safety Report 22348091 (Version 1)
Quarter: 2023Q2

REPORT INFORMATION
  Report Type: Other
  Country: CN (occurrence: CN)
  Receive Date: 20230522
  Receipt Date: 20230522
  Transmission Date: 20230721
  Serious: Yes (Hospitalization)
  Sender: FDA-Public Use
  Company Number: CN-ALVOGEN-2023091507

PATIENT
  Age: 12 Year
  Sex: Female

DRUGS (16)
  1. NIFEDIPINE [Suspect]
     Active Substance: NIFEDIPINE
     Indication: Hypertension
  2. VORICONAZOLE [Suspect]
     Active Substance: VORICONAZOLE
     Indication: Fungal infection
     Dosage: INTRAVENOUS INFUSION OF CASPOFUNGIN AND VORICONAZOLE WAS ADMINISTERED.
  3. CASPOFUNGIN [Concomitant]
     Active Substance: CASPOFUNGIN
     Indication: Fungal infection
     Dosage: INTRAVENOUS INFUSION OF CASPOFUNGIN AND VORICONAZOLE WAS ADMINISTERED.
  4. FOSINOPRIL [Concomitant]
     Active Substance: FOSINOPRIL
     Indication: Hypertension
  5. LABETALOL HYDROCHLORIDE [Concomitant]
     Active Substance: LABETALOL HYDROCHLORIDE
     Indication: Hypertension
  6. LABETALOL HYDROCHLORIDE [Concomitant]
     Active Substance: LABETALOL HYDROCHLORIDE
     Indication: Hypertension
     Dosage: GRADUALLY REDUCED AND DISCONTINUED AS THE CHILD WAS RELIEVED AND THE BLOOD PRESSURE IMPROVED.
  7. LABETALOL HYDROCHLORIDE [Concomitant]
     Active Substance: LABETALOL HYDROCHLORIDE
     Indication: Hypertension
     Dosage: ADDED TO REDUCE THE BLOOD PRESSURE.
  8. PRAZOSIN [Concomitant]
     Active Substance: PRAZOSIN
     Indication: Hypertension
  9. PRAZOSIN [Concomitant]
     Active Substance: PRAZOSIN
     Indication: Hypertension
     Dosage: GRADUALLY REDUCED AND DISCONTINUED AS THE CHILD WAS RELIEVED AND THE BLOOD PRESSURE IMPROVED.
  10. PRAZOSIN [Concomitant]
     Active Substance: PRAZOSIN
     Indication: Hypertension
     Dosage: ADDED TO REDUCE THE BLOOD PRESSURE.
  11. LEVETIRACETAM [Concomitant]
     Active Substance: LEVETIRACETAM
     Indication: Epilepsy
     Dosage: ONCE EVERY 12 HOURS
  12. LEVETIRACETAM [Concomitant]
     Active Substance: LEVETIRACETAM
     Indication: Epilepsy
     Dosage: WAS UP-REGULATED
  13. LEVETIRACETAM [Concomitant]
     Active Substance: LEVETIRACETAM
     Indication: Epilepsy
     Dosage: INCREASED
  14. METHYLPREDNISOLONE [Concomitant]
     Active Substance: METHYLPREDNISOLONE
     Indication: Product used for unknown indication
  15. IMMUNE GLOBULIN NOS [Concomitant]
     Active Substance: IMMUNE GLOBULIN NOS
     Indication: Product used for unknown indication
  16. RITUXIMAB [Concomitant]
     Active Substance: RITUXIMAB
     Indication: Product used for unknown indication

REACTIONS (4)
  - Hypertensive encephalopathy [Unknown]
  - Seizure [Recovered/Resolved]
  - Blood pressure fluctuation [Recovered/Resolved]
  - Drug interaction [Unknown]
